FAERS Safety Report 8874733 (Version 2)
Quarter: 2012Q4

REPORT INFORMATION
  Report Type: 
  Country: US (occurrence: US)
  Receive Date: 20121023
  Receipt Date: 20121226
  Transmission Date: 20130627
  Serious: Yes (Death)
  Sender: FDA-Public Use
  Company Number: US-ROCHE-1131966

PATIENT
  Sex: Male

DRUGS (47)
  1. RITUXAN [Suspect]
     Indication: LYMPHOMA
     Dosage: -
     Route: 065
  2. RITUXAN [Suspect]
     Indication: LYMPHOMA
     Route: 065
     Dates: start: 20060227
  3. RITUXAN [Suspect]
     Indication: OFF LABEL USE
     Route: 065
     Dates: start: 20060907
  4. RITUXAN [Suspect]
     Route: 065
     Dates: start: 20060928
  5. RITUXAN [Suspect]
     Route: 065
     Dates: start: 20061019
  6. RITUXAN [Suspect]
     Route: 065
     Dates: start: 20061116
  7. RITUXAN [Suspect]
     Dosage: MAINTAINENCE DOSE
     Route: 065
     Dates: start: 20080930, end: 20081211
  8. FCR REGIMEN [Concomitant]
     Route: 065
     Dates: start: 20071203
  9. FCR REGIMEN [Concomitant]
     Route: 065
     Dates: start: 20080109
  10. FCR REGIMEN [Concomitant]
     Route: 065
     Dates: start: 20080206
  11. PROMACTA [Concomitant]
     Route: 065
     Dates: start: 20100214
  12. VALACYCLOVIR [Concomitant]
     Route: 065
     Dates: start: 20090331
  13. LIPODERMA PATCH [Concomitant]
  14. ZOSTRIX [Concomitant]
  15. HEPARIN [Concomitant]
  16. COUMADIN [Concomitant]
     Route: 065
     Dates: start: 20080306
  17. COUMADIN [Concomitant]
     Route: 065
     Dates: start: 20080313
  18. COUMADIN [Concomitant]
     Dosage: DOSE DECREASED
     Route: 065
  19. COUMADIN [Concomitant]
     Route: 065
     Dates: start: 20080401
  20. BACTROBAN [Concomitant]
  21. HIBICLENS [Concomitant]
     Route: 065
     Dates: start: 20090917
  22. VELCADE [Concomitant]
     Route: 065
     Dates: start: 20070515
  23. VELCADE [Concomitant]
     Route: 065
     Dates: start: 20070605
  24. VELCADE [Concomitant]
     Route: 065
     Dates: start: 20070626
  25. VELCADE [Concomitant]
     Route: 065
     Dates: start: 20070705
  26. VELCADE [Concomitant]
     Route: 065
     Dates: start: 20070717
  27. VELCADE [Concomitant]
     Route: 065
     Dates: start: 20070727
  28. REVLIMID [Concomitant]
     Route: 065
     Dates: start: 20091221, end: 20100215
  29. PREDNISONE [Concomitant]
  30. DECADRON [Concomitant]
     Dosage: DAILY x 5 DAYS
     Route: 065
     Dates: start: 20091203
  31. DECADRON [Concomitant]
     Route: 065
     Dates: start: 20091228
  32. ELTROMBOPAG [Concomitant]
     Route: 065
     Dates: start: 20090215
  33. OXYCONTIN [Concomitant]
     Dosage: 2 tab
     Route: 065
  34. OXYCODONE [Concomitant]
     Dosage: 3 tab every 4 hrs
     Route: 065
  35. ACTOS [Concomitant]
     Route: 065
  36. UROXATRAL [Concomitant]
     Route: 065
     Dates: end: 20100215
  37. NEURONTIN [Concomitant]
     Route: 065
  38. GLUCOTROL [Concomitant]
     Route: 065
     Dates: start: 20091203
  39. GLUCOTROL [Concomitant]
     Route: 065
  40. LANTUS [Concomitant]
  41. GLUCOPHAGE [Concomitant]
     Route: 065
  42. HYDROCHLOROTHIAZIDE [Concomitant]
     Route: 065
  43. PLAVIX [Concomitant]
     Route: 065
     Dates: end: 20100215
  44. DAYPRO [Concomitant]
     Route: 065
     Dates: end: 20100215
  45. TIAZAC [Concomitant]
     Route: 065
  46. TIAZAC [Concomitant]
     Route: 065
  47. METOPROLOL [Concomitant]
     Route: 065

REACTIONS (1)
  - Lymphoma [Fatal]
